FAERS Safety Report 23905631 (Version 2)
Quarter: 2024Q4

REPORT INFORMATION
  Report Type: Spontaneous
  Country: CA (occurrence: CA)
  Receive Date: 20240527
  Receipt Date: 20241031
  Transmission Date: 20250114
  Serious: Yes (Other)
  Sender: PFIZER
  Company Number: CA-PFIZER INC-202400174995

PATIENT
  Age: 14 Year
  Sex: Male
  Weight: 90 kg

DRUGS (3)
  1. METHOTREXATE SODIUM [Suspect]
     Active Substance: METHOTREXATE SODIUM
     Indication: Uveitis
     Dosage: 1 DF, WEEKLY, X 1 YEAR
     Route: 058
  2. ABRILADA [ADALIMUMAB AFZB] [Concomitant]
     Indication: Uveitis
     Dosage: 40 MG, CYCLIC ( EVERY 2 WEEK)
     Route: 058
     Dates: start: 20240529
  3. NAPHAZOLINE HYDROCHLORIDE [Concomitant]
     Active Substance: NAPHAZOLINE HYDROCHLORIDE
     Indication: Intraocular pressure increased
     Dosage: UNK

REACTIONS (5)
  - Gastrointestinal disorder [Unknown]
  - Uveitis [Not Recovered/Not Resolved]
  - Off label use [Unknown]
  - Off label use [Unknown]
  - Off label use [Unknown]
